FAERS Safety Report 10770980 (Version 2)
Quarter: 2015Q1

REPORT INFORMATION
  Report Type: Spontaneous
  Country: US (occurrence: US)
  Receive Date: 20150206
  Receipt Date: 20150316
  Transmission Date: 20150721
  Serious: No
  Sender: FDA-Public Use
  Company Number: US-GLAXOSMITHKLINE-US2014033613

PATIENT
  Sex: Male

DRUGS (1)
  1. TANZEUM [Suspect]
     Active Substance: ALBIGLUTIDE
     Indication: PRODUCT USED FOR UNKNOWN INDICATION
     Dosage: 30 MG, U
     Route: 058
     Dates: start: 20141118, end: 20141202

REACTIONS (6)
  - Cheilitis [Unknown]
  - Oral discomfort [Unknown]
  - Lip swelling [Unknown]
  - Rash [Unknown]
  - Hypersensitivity [Recovered/Resolved]
  - Injection site erythema [Unknown]
